FAERS Safety Report 17074298 (Version 1)
Quarter: 2019Q4

REPORT INFORMATION
  Report Type: Spontaneous
  Country: NL (occurrence: NL)
  Receive Date: 20191126
  Receipt Date: 20191126
  Transmission Date: 20200122
  Serious: Yes (Other)
  Sender: FDA-Public Use
  Company Number: NL-ACCORD-162385

PATIENT
  Sex: Male

DRUGS (1)
  1. CLOPIDOGREL [Suspect]
     Active Substance: CLOPIDOGREL BISULFATE
     Indication: ANEURYSM REPAIR
     Dosage: STRENGTH: 75 MG 1X PER DAY 1 PIECE
     Dates: start: 20190920, end: 20191015

REACTIONS (2)
  - Toxic skin eruption [Not Recovered/Not Resolved]
  - Urticaria [Not Recovered/Not Resolved]
